APPROVED DRUG PRODUCT: DEXTROSE 5% IN PLASTIC CONTAINER
Active Ingredient: DEXTROSE
Strength: 50MG/ML
Dosage Form/Route: INJECTABLE;INJECTION
Application: A207449 | Product #001 | TE Code: AP
Applicant: FRESENIUS KABI USA LLC
Approved: Oct 21, 2016 | RLD: No | RS: No | Type: RX